FAERS Safety Report 5443814-1 (Version None)
Quarter: 2007Q3

REPORT INFORMATION
  Report Type: 
  Country: None (occurrence: None)
  Receive Date: 20070905
  Receipt Date: 20070824
  Transmission Date: 20080115
  Serious: Yes (Other)
  Sender: FDA-Public Use
  Company Number: FI-PFIZER INC-2007067677

PATIENT
  Sex: Female
  Weight: 94 kg

DRUGS (3)
  1. CHAMPIX [Suspect]
     Indication: SMOKING CESSATION THERAPY
     Route: 048
     Dates: start: 20070401, end: 20070501
  2. AMLODIPINE [Concomitant]
     Indication: HYPERTENSION
     Route: 048
  3. CARVEDILOL [Concomitant]
     Indication: HYPERTENSION
     Route: 048

REACTIONS (2)
  - AGGRESSION [None]
  - HOMICIDAL IDEATION [None]
